FAERS Safety Report 8862171 (Version 1)
Quarter: 2012Q4

REPORT INFORMATION
  Report Type: 
  Country: US (occurrence: US)
  Receive Date: 20121026
  Receipt Date: 20121026
  Transmission Date: 20130627
  Serious: Yes (Hospitalization)
  Sender: FDA-Public Use
  Company Number: US-009507513-1210USA010750

PATIENT
  Age: 19 Year
  Sex: Female

DRUGS (2)
  1. NUVARING [Suspect]
     Dosage: UNK
     Dates: start: 20121015, end: 20121022
  2. Z-PAK [Concomitant]

REACTIONS (1)
  - Cerebral venous thrombosis [Unknown]
